FAERS Safety Report 8825734 (Version 2)
Quarter: 2012Q4

REPORT INFORMATION
  Report Type: 
  Country: DK (occurrence: DK)
  Receive Date: 20121004
  Receipt Date: 20121206
  Transmission Date: 20130627
  Serious: Yes (Disabling)
  Sender: FDA-Public Use
  Company Number: DK-NOVOPROD-360983

PATIENT
  Age: 17 Year
  Sex: Male
  Weight: 121 kg

DRUGS (1)
  1. NORDITROPIN SIMPLEXX [Suspect]
     Indication: GROWTH HORMONE DEFICIENCY
     Dosage: 1.2 mg, qd
     Route: 058
     Dates: start: 20090501, end: 20100910

REACTIONS (2)
  - Bone giant cell tumour [Recovered/Resolved with Sequelae]
  - Leg amputation [Recovered/Resolved with Sequelae]
